FAERS Safety Report 10462071 (Version 5)
Quarter: 2015Q2

REPORT INFORMATION
  Report Type: Report from Study
  Country: US (occurrence: US)
  Receive Date: 20140918
  Receipt Date: 20150629
  Transmission Date: 20150821
  Serious: Yes (Other)
  Sender: FDA-Public Use
  Company Number: US-SA-2014SA116477

PATIENT
  Age: 46 Year
  Sex: Female

DRUGS (6)
  1. AUBAGIO [Suspect]
     Active Substance: TERIFLUNOMIDE
     Indication: MULTIPLE SCLEROSIS
     Route: 048
     Dates: start: 201501, end: 20150223
  2. MINERALS NOS/VITAMINS NOS [Concomitant]
  3. SINGULAIR [Concomitant]
     Active Substance: MONTELUKAST SODIUM
  4. AMPYRA [Concomitant]
     Active Substance: DALFAMPRIDINE
  5. AUBAGIO [Suspect]
     Active Substance: TERIFLUNOMIDE
     Indication: MULTIPLE SCLEROSIS
     Route: 048
     Dates: start: 20140809, end: 201501
  6. VALIUM [Concomitant]
     Active Substance: DIAZEPAM

REACTIONS (14)
  - Urostomy complication [Unknown]
  - Nasopharyngitis [Unknown]
  - Inappropriate schedule of drug administration [Unknown]
  - Peroneal nerve palsy [Unknown]
  - Urostomy [Unknown]
  - Urinary tract infection [Unknown]
  - Pain in extremity [Unknown]
  - Fall [Unknown]
  - Memory impairment [Unknown]
  - Feeling abnormal [Unknown]
  - Diarrhoea [Unknown]
  - Pain [Unknown]
  - Tremor [Unknown]
  - Drug dose omission [Unknown]

NARRATIVE: CASE EVENT DATE: 201411
